FAERS Safety Report 11754608 (Version 2)
Quarter: 2016Q1

REPORT INFORMATION
  Report Type: Spontaneous
  Country: DK (occurrence: DK)
  Receive Date: 20151119
  Receipt Date: 20160105
  Transmission Date: 20160525
  Serious: Yes (Other)
  Sender: FDA-Public Use
  Company Number: DK-SA-2015SA181444

PATIENT
  Age: 37 Year
  Sex: Male

DRUGS (3)
  1. LEMTRADA [Suspect]
     Active Substance: ALEMTUZUMAB
     Indication: MULTIPLE SCLEROSIS
     Route: 042
     Dates: start: 20150817, end: 20150821
  2. MODIODAL [Concomitant]
     Active Substance: MODAFINIL
     Indication: FATIGUE
     Route: 048
     Dates: start: 20110601
  3. CIALIS [Concomitant]
     Active Substance: TADALAFIL
     Indication: ERECTILE DYSFUNCTION
     Route: 048
     Dates: start: 20110601

REACTIONS (1)
  - Haematochezia [Recovered/Resolved]

NARRATIVE: CASE EVENT DATE: 20151011
